FAERS Safety Report 15785258 (Version 2)
Quarter: 2019Q1

REPORT INFORMATION
  Report Type: Spontaneous
  Country: AU (occurrence: AU)
  Receive Date: 20190103
  Receipt Date: 20190329
  Transmission Date: 20190417
  Serious: Yes (Other)
  Sender: FDA-Public Use
  Company Number: AU-TEVA-2018-AU-994298

PATIENT
  Age: 45 Year
  Sex: Female

DRUGS (11)
  1. PREDNISOLONE. [Concomitant]
     Active Substance: PREDNISOLONE
  2. TACROLIMUS. [Concomitant]
     Active Substance: TACROLIMUS
  3. DIPHENCYPRONE [Concomitant]
     Active Substance: DIPHENCYPRONE
  4. BLEOMYCIN [Concomitant]
     Active Substance: BLEOMYCIN SULFATE
  5. TRICHLOROACETIC ACID [Concomitant]
     Active Substance: TRICHLOROACETIC ACID
  6. ACITRETIN. [Suspect]
     Active Substance: ACITRETIN
     Indication: SKIN PAPILLOMA
     Dosage: 10 MG, ON ALTERNATING DAYS
     Route: 065
  7. MYCOPHENOLATE MOFETIL. [Concomitant]
     Active Substance: MYCOPHENOLATE MOFETIL
  8. LIQUID NITROGEN [Concomitant]
     Active Substance: NITROGEN
  9. SALICYLIC ACID. [Concomitant]
     Active Substance: SALICYLIC ACID
  10. PODOPHYLLIN [Concomitant]
     Active Substance: PODOPHYLLUM RESIN
  11. CANTHARIDIN [Concomitant]
     Active Substance: CANTHARIDIN

REACTIONS (3)
  - Hypercholesterolaemia [Unknown]
  - Renal impairment [Unknown]
  - Product prescribing error [Unknown]
